FAERS Safety Report 18588310 (Version 1)
Quarter: 2020Q4

REPORT INFORMATION
  Report Type: Spontaneous
  Country: US (occurrence: US)
  Receive Date: 20201207
  Receipt Date: 20201207
  Transmission Date: 20210114
  Serious: No
  Sender: FDA-Public Use
  Company Number: US-PERRIGO-20US002112

PATIENT
  Age: 88 Year
  Sex: Female
  Weight: 55.33 kg

DRUGS (2)
  1. TRIAMCINOLONE ACETONIDE. [Suspect]
     Active Substance: TRIAMCINOLONE ACETONIDE
     Indication: RASH PRURITIC
     Dosage: THIN FILM, 3 TO 4 TIMES DAILY
     Route: 061
     Dates: start: 20190927, end: 20200131
  2. TRIAMCINOLONE [Suspect]
     Active Substance: TRIAMCINOLONE
     Indication: RASH PRURITIC
     Dosage: THIN LAYER, 3 TO 4 TIMES DAILY
     Route: 061
     Dates: start: 20200131, end: 20200204

REACTIONS (4)
  - Condition aggravated [Not Recovered/Not Resolved]
  - Drug ineffective [Unknown]
  - Tooth discolouration [Not Recovered/Not Resolved]
  - Alopecia [Not Recovered/Not Resolved]

NARRATIVE: CASE EVENT DATE: 20190927
